FAERS Safety Report 9380949 (Version 1)
Quarter: 2013Q3

REPORT INFORMATION
  Report Type: Spontaneous
  Country: SK (occurrence: SK)
  Receive Date: 20130703
  Receipt Date: 20130703
  Transmission Date: 20140515
  Serious: Yes (Hospitalization)
  Sender: FDA-Public Use
  Company Number: SK-ROCHE-1242306

PATIENT
  Age: 70 Year
  Sex: Male

DRUGS (6)
  1. MABTHERA [Suspect]
     Indication: MANTLE CELL LYMPHOMA
     Route: 065
     Dates: start: 20130219
  2. DIFLUCAN [Concomitant]
  3. HERPESIN [Concomitant]
  4. CIPHIN [Concomitant]
  5. PIRABENE [Concomitant]
  6. PROCORALAN [Concomitant]

REACTIONS (1)
  - Adverse drug reaction [Unknown]
